FAERS Safety Report 21590703 (Version 1)
Quarter: 2022Q4

REPORT INFORMATION
  Report Type: Spontaneous
  Country: US (occurrence: US)
  Receive Date: 20221114
  Receipt Date: 20221114
  Transmission Date: 20230113
  Serious: No
  Sender: FDA-Public Use
  Company Number: US-TARO PHARMACEUTICALS USA INC.-2022TAR00801

PATIENT

DRUGS (2)
  1. MUPIROCIN [Suspect]
     Active Substance: MUPIROCIN
     Indication: Lichen sclerosus
     Dosage: UNK, BID
     Route: 061
     Dates: start: 202205
  2. MUPIROCIN [Suspect]
     Active Substance: MUPIROCIN
     Dosage: UNK, 2/WEEK, AS NEEDED
     Route: 061

REACTIONS (4)
  - Gait inability [Unknown]
  - Arthralgia [Not Recovered/Not Resolved]
  - Renal disorder [Recovered/Resolved]
  - Product use in unapproved indication [Unknown]
